FAERS Safety Report 19991051 (Version 1)
Quarter: 2021Q4

REPORT INFORMATION
  Report Type: Spontaneous
  Country: US (occurrence: US)
  Receive Date: 20211025
  Receipt Date: 20211025
  Transmission Date: 20220303
  Serious: No
  Sender: FDA-Public Use
  Company Number: None

PATIENT
  Age: 64 Year
  Sex: Female

DRUGS (10)
  1. VERZENIO [Suspect]
     Active Substance: ABEMACICLIB
     Indication: Breast cancer
     Route: 048
     Dates: start: 20210924
  2. BUPROPION HYDROCHLORIDE [Concomitant]
     Active Substance: BUPROPION HYDROCHLORIDE
  3. DRONABINOL [Concomitant]
     Active Substance: DRONABINOL
     Dates: start: 20210518
  4. IRBESARTAN [Concomitant]
     Active Substance: IRBESARTAN
     Dates: start: 20200818
  5. Letrozole 2.5mlg [Concomitant]
     Dates: start: 20211014
  6. LIDOCAINE\PRILOCAINE [Concomitant]
     Active Substance: LIDOCAINE\PRILOCAINE
     Dates: start: 20201116
  7. Prazosin 5mg [Concomitant]
     Dates: start: 20200429
  8. PROPRANOLOL HYDROCHLORIDE [Concomitant]
     Active Substance: PROPRANOLOL HYDROCHLORIDE
     Dates: start: 20200429
  9. QUETIAPINE [Concomitant]
     Active Substance: QUETIAPINE
     Dates: start: 20200519
  10. SERTRALINE [Concomitant]
     Active Substance: SERTRALINE HYDROCHLORIDE
     Dates: start: 20200913

REACTIONS (1)
  - Diarrhoea [None]

NARRATIVE: CASE EVENT DATE: 20211011
